FAERS Safety Report 18889470 (Version 2)
Quarter: 2021Q1

REPORT INFORMATION
  Report Type: Spontaneous
  Country: US (occurrence: US)
  Receive Date: 20210213
  Receipt Date: 20210216
  Transmission Date: 20210420
  Serious: No
  Sender: FDA-Public Use
  Company Number: US-009507513-2102USA003900

PATIENT
  Age: 16 Year
  Sex: Female

DRUGS (1)
  1. NEXPLANON [Suspect]
     Active Substance: ETONOGESTREL
     Indication: CONTRACEPTION
     Dosage: 1 IMPLANT, LEFT ARM UNDER THE SKIN
     Route: 059
     Dates: start: 2010

REACTIONS (6)
  - Surgery [Unknown]
  - Complication of device removal [Not Recovered/Not Resolved]
  - Removal of foreign body [Unknown]
  - Incorrect product administration duration [Unknown]
  - Infertility female [Not Recovered/Not Resolved]
  - Complication associated with device [Not Recovered/Not Resolved]

NARRATIVE: CASE EVENT DATE: 2013
